FAERS Safety Report 6848192-9 (Version None)
Quarter: 2010Q3

REPORT INFORMATION
  Report Type: 
  Country: None (occurrence: None)
  Receive Date: 20100716
  Receipt Date: 20100708
  Transmission Date: 20110219
  Serious: Yes (Hospitalization)
  Sender: FDA-Public Use
  Company Number: B0664266A

PATIENT
  Sex: Male

DRUGS (6)
  1. ZELITREX [Suspect]
     Dosage: 1000MG TWICE PER DAY
     Route: 048
     Dates: start: 20100317, end: 20100323
  2. KEPPRA [Suspect]
     Indication: EPILEPSY
     Route: 048
     Dates: start: 20091222, end: 20100413
  3. TEMODAL [Suspect]
     Indication: GLIOMA
     Dosage: 145MG PER DAY
     Route: 048
     Dates: start: 20100222, end: 20100331
  4. URBANYL [Suspect]
     Dosage: 10MG TWICE PER DAY
     Route: 048
     Dates: start: 20100317, end: 20100326
  5. CORTANCYL [Concomitant]
     Indication: PRODUCT USED FOR UNKNOWN INDICATION
     Dosage: 20MG PER DAY
     Route: 065
  6. NEXIUM [Concomitant]
     Indication: PRODUCT USED FOR UNKNOWN INDICATION
     Dosage: 20MG PER DAY
     Route: 065

REACTIONS (4)
  - CHOLANGITIS [None]
  - CYTOLYTIC HEPATITIS [None]
  - HEPATITIS CHOLESTATIC [None]
  - JAUNDICE [None]
